FAERS Safety Report 4635678-0 (Version None)
Quarter: 2005Q2

REPORT INFORMATION
  Report Type: 
  Country: None (occurrence: None)
  Receive Date: 20050414
  Receipt Date: 20050330
  Transmission Date: 20051028
  Serious: Yes (Hospitalization)
  Sender: FDA-Public Use
  Company Number: ENT 2005-0040

PATIENT
  Age: 62 Year
  Sex: Male

DRUGS (1)
  1. COMTAN [Suspect]
     Indication: PARKINSON'S DISEASE
     Dosage: ORAL
     Route: 048
     Dates: start: 20021001

REACTIONS (3)
  - BALANCE DISORDER [None]
  - CARDIOVASCULAR DISORDER [None]
  - TEMPERATURE INTOLERANCE [None]
